FAERS Safety Report 18962235 (Version 1)
Quarter: 2021Q1

REPORT INFORMATION
  Report Type: Spontaneous
  Country: US (occurrence: US)
  Receive Date: 20210302
  Receipt Date: 20210302
  Transmission Date: 20210420
  Serious: Yes (Life-Threatening)
  Sender: FDA-Public Use
  Company Number: None

PATIENT
  Age: 76 Year
  Sex: Male

DRUGS (1)
  1. SUCCINYLCHOLINE (SUCCINYLCHOLINE CHLORIDE 100MG/ML INJ) [Suspect]
     Active Substance: SUCCINYLCHOLINE CHLORIDE
     Indication: ANAESTHESIA
     Dosage: ?          OTHER ROUTE:IV?
     Route: 042
     Dates: start: 20210218, end: 20210218

REACTIONS (8)
  - Pneumoperitoneum [None]
  - Anaesthetic complication cardiac [None]
  - Cardiac arrest [None]
  - Electrocardiogram T wave inversion [None]
  - Atrioventricular block complete [None]
  - Presyncope [None]
  - Procedure aborted [None]
  - Hyperkalaemia [None]

NARRATIVE: CASE EVENT DATE: 20210218
